FAERS Safety Report 6556953-9 (Version None)
Quarter: 2010Q1

REPORT INFORMATION
  Report Type: 
  Country: None (occurrence: None)
  Receive Date: 20100126
  Receipt Date: 20100108
  Transmission Date: 20100710
  Serious: Yes (Other)
  Sender: FDA-Public Use
  Company Number: 1000011449

PATIENT
  Age: 60 Year
  Sex: Female

DRUGS (1)
  1. MEMANTINE HCL [Suspect]
     Dosage: ORAL
     Route: 048

REACTIONS (2)
  - CIRCUMSTANCE OR INFORMATION CAPABLE OF LEADING TO MEDICATION ERROR [None]
  - INCORRECT DRUG ADMINISTRATION DURATION [None]
